FAERS Safety Report 5002929-2 (Version None)
Quarter: 2006Q2

REPORT INFORMATION
  Report Type: 
  Country: None (occurrence: None)
  Receive Date: 20060516
  Receipt Date: 20060410
  Transmission Date: 20061013
  Serious: Yes (Life-Threatening)
  Sender: FDA-Public Use
  Company Number: US-GLAXOSMITHKLINE-A0601632A

PATIENT
  Age: 74 Year
  Sex: Female

DRUGS (5)
  1. FLONASE [Suspect]
     Indication: MULTIPLE ALLERGIES
     Route: 045
     Dates: end: 20060201
  2. NASONEX [Suspect]
     Indication: MULTIPLE ALLERGIES
     Route: 045
     Dates: start: 20060201
  3. NARCOTIC [Suspect]
     Indication: PAIN
     Route: 065
  4. SYNTHROID [Concomitant]
     Dates: end: 20060201
  5. LEVOTHYROXINE SODIUM [Concomitant]
     Dates: start: 20060201

REACTIONS (9)
  - ARTERIAL OCCLUSIVE DISEASE [None]
  - COMA [None]
  - CORONARY ARTERY STENOSIS [None]
  - ERYTHEMA [None]
  - HEADACHE [None]
  - OVERDOSE [None]
  - RASH [None]
  - SYNCOPE [None]
  - SYNCOPE VASOVAGAL [None]
